FAERS Safety Report 13188107 (Version 1)
Quarter: 2017Q1

REPORT INFORMATION
  Report Type: Spontaneous
  Country: US (occurrence: US)
  Receive Date: 20170206
  Receipt Date: 20170206
  Transmission Date: 20170428
  Serious: No
  Sender: FDA-Public Use
  Company Number: US-ASTRAZENECA-2017SE10039

PATIENT
  Sex: Male

DRUGS (2)
  1. TUDORZA PRESSAIR [Suspect]
     Active Substance: ACLIDINIUM BROMIDE
     Route: 055
  2. PROAIR INHALER [Concomitant]
     Indication: WHEEZING
     Dosage: 90.0UG AS REQUIRED
     Route: 055

REACTIONS (3)
  - Device malfunction [Unknown]
  - Obstructive airways disorder [Unknown]
  - Drug dose omission [Unknown]
